FAERS Safety Report 5069501-X (Version None)
Quarter: 2006Q3

REPORT INFORMATION
  Report Type: 
  Country: None (occurrence: None)
  Receive Date: 20060801
  Receipt Date: 20060801
  Transmission Date: 20061208
  Serious: Yes (Disabling)
  Sender: FDA-Public Use
  Company Number: None

PATIENT
  Age: 9 Year
  Sex: Female
  Weight: 27.2158 kg

DRUGS (1)
  1. TYLENOL PLUS COLD AND FLU MED AGE 6-10 10CC MCNEIL PPC, INC. [Suspect]
     Indication: NASOPHARYNGITIS
     Dosage: 2 TSP EVERY 4-6 HRS PO
     Route: 048
     Dates: start: 20060721, end: 20060721

REACTIONS (4)
  - CONVULSION [None]
  - CRYING [None]
  - EXTRAPYRAMIDAL DISORDER [None]
  - EYE ROLLING [None]
